FAERS Safety Report 8398045-2 (Version None)
Quarter: 2012Q2

REPORT INFORMATION
  Report Type: 
  Country: None (occurrence: None)
  Receive Date: 20120531
  Receipt Date: 20120529
  Transmission Date: 20120825
  Serious: Yes (Death)
  Sender: FDA-Public Use
  Company Number: US-PFIZER INC-2012129556

PATIENT
  Sex: Male

DRUGS (2)
  1. BENICAR [Concomitant]
     Dosage: 40 MG, ONCE DAILY
  2. LIPITOR [Suspect]
     Dosage: 20 MG, ONCE DAILY
     Route: 048

REACTIONS (1)
  - DEATH [None]
